FAERS Safety Report 6655634-0 (Version None)
Quarter: 2010Q1

REPORT INFORMATION
  Report Type: 
  Country: None (occurrence: None)
  Receive Date: 20100326
  Receipt Date: 20100326
  Transmission Date: 20100710
  Serious: No
  Sender: FDA-Public Use
  Company Number: None

PATIENT
  Age: 60 Year
  Sex: Male

DRUGS (1)
  1. ZOLPIDEM [Suspect]
     Dosage: 5 MG HS PO
     Route: 048
     Dates: start: 20091211, end: 20091222

REACTIONS (4)
  - ALCOHOL USE [None]
  - AMNESIA [None]
  - SOMNAMBULISM [None]
  - STEREOTYPY [None]
